FAERS Safety Report 20923483 (Version 2)
Quarter: 2025Q2

REPORT INFORMATION
  Report Type: Spontaneous
  Country: IT (occurrence: IT)
  Receive Date: 20220607
  Receipt Date: 20250429
  Transmission Date: 20250717
  Serious: Yes (Hospitalization, Other)
  Sender: AUROBINDO
  Company Number: IT-ALFASIGMA-2022.22271

PATIENT
  Age: 38 Year
  Sex: Female

DRUGS (9)
  1. ACETAMINOPHEN [Suspect]
     Active Substance: ACETAMINOPHEN
     Indication: COVID-19
     Route: 065
  2. PAROXETINE [Suspect]
     Active Substance: PAROXETINE
     Indication: Anxiety
     Route: 065
  3. PIPERACILLIN AND TAZOBACTAM [Suspect]
     Active Substance: PIPERACILLIN SODIUM\TAZOBACTAM SODIUM
     Indication: Escherichia bacteraemia
     Route: 065
  4. CABERGOLINE [Suspect]
     Active Substance: CABERGOLINE
     Indication: Lactation inhibition therapy
     Route: 065
  5. DEXAMETHASONE [Suspect]
     Active Substance: DEXAMETHASONE
     Indication: COVID-19
     Dosage: 8 MILLIGRAM, ONCE A DAY
     Route: 042
  6. UNSPECIFIED INGREDIENT [Suspect]
     Active Substance: UNSPECIFIED INGREDIENT
     Indication: COVID-19
     Route: 065
  7. OXYTOCIN [Suspect]
     Active Substance: OXYTOCIN
     Indication: Postpartum haemorrhage
     Route: 065
  8. OXACILLIN [Suspect]
     Active Substance: OXACILLIN SODIUM
     Indication: Staphylococcal bacteraemia
     Route: 065
  9. VANCOMYCIN [Suspect]
     Active Substance: VANCOMYCIN
     Indication: Staphylococcal infection
     Route: 065

REACTIONS (9)
  - Pulmonary infarction [Recovered/Resolved]
  - Postpartum venous thrombosis [Recovered/Resolved]
  - Catheter site thrombosis [Recovered/Resolved]
  - Pulmonary embolism [Recovered/Resolved]
  - Condition aggravated [Recovered/Resolved]
  - Subclavian vein thrombosis [Unknown]
  - Jugular vein thrombosis [Unknown]
  - Maternal exposure during pregnancy [Unknown]
  - Off label use [Unknown]
